FAERS Safety Report 11809820 (Version 1)
Quarter: 2015Q4

REPORT INFORMATION
  Report Type: Spontaneous
  Country: US (occurrence: None)
  Receive Date: 20151207
  Receipt Date: 20151207
  Transmission Date: 20160305
  Serious: Yes (Death)
  Sender: FDA-Public Use
  Company Number: None

PATIENT
  Age: 59 Year
  Sex: Female
  Weight: 45.36 kg

DRUGS (1)
  1. FECAL TRANSPLANT PRODUCT 0078-0015-01(FMP30) OPEN BIOME [Suspect]
     Active Substance: FECAL MICROBIOTA
     Indication: CLOSTRIDIUM DIFFICILE INFECTION
     Dosage: 30 ML X1 UPPER ENDOSCOPY
     Dates: start: 20151106

REACTIONS (4)
  - Respiratory failure [None]
  - Small intestinal obstruction [None]
  - Pneumonia [None]
  - Vomiting [None]

NARRATIVE: CASE EVENT DATE: 20151106
